FAERS Safety Report 9553083 (Version 1)
Quarter: 2013Q3

REPORT INFORMATION
  Report Type: Report from Study
  Country: AR (occurrence: AR)
  Receive Date: 20130925
  Receipt Date: 20130925
  Transmission Date: 20140515
  Serious: Yes (Other)
  Sender: FDA-Public Use
  Company Number: PHHY2013AR106760

PATIENT
  Sex: Female

DRUGS (2)
  1. EXFORGE D [Suspect]
     Indication: HYPERTENSION
     Dosage: 0.5 DF (160/5/12.5 MG), BID
     Route: 048
     Dates: start: 201308
  2. DIOVAN D [Suspect]
     Indication: HYPERTENSION
     Dosage: 1 DF (160/12.5 MG), DAILY
     Route: 048

REACTIONS (2)
  - Chronic obstructive pulmonary disease [Unknown]
  - Bronchitis [Recovered/Resolved]
